FAERS Safety Report 6082187-0 (Version None)
Quarter: 2009Q1

REPORT INFORMATION
  Report Type: 
  Country: None (occurrence: None)
  Receive Date: 20090218
  Receipt Date: 20090216
  Transmission Date: 20090719
  Serious: Yes (Death, Hospitalization)
  Sender: FDA-Public Use
  Company Number: A0768694A

PATIENT
  Age: 84 Year
  Sex: Male

DRUGS (6)
  1. LANOXIN [Suspect]
     Indication: ATRIAL FIBRILLATION
     Dosage: 25MG PER DAY
     Route: 048
     Dates: start: 20080716
  2. UNKNOWN MEDICATION [Concomitant]
  3. AGGRENOX [Concomitant]
  4. NORVASC [Concomitant]
  5. AMILORIDE HCL AND HYDROCHLOROTHIAZIDE [Concomitant]
  6. LIPITOR [Concomitant]

REACTIONS (11)
  - ASTHENIA [None]
  - BLOOD CREATININE INCREASED [None]
  - CARDIOACTIVE DRUG LEVEL INCREASED [None]
  - CEREBROVASCULAR ACCIDENT [None]
  - DISORIENTATION [None]
  - INFECTION [None]
  - INSOMNIA [None]
  - SEPTIC SHOCK [None]
  - SPEECH DISORDER [None]
  - THERAPEUTIC AGENT TOXICITY [None]
  - VOMITING [None]
